FAERS Safety Report 15910011 (Version 2)
Quarter: 2019Q3

REPORT INFORMATION
  Report Type: Spontaneous
  Country: FR (occurrence: FR)
  Receive Date: 20190204
  Receipt Date: 20190821
  Transmission Date: 20191004
  Serious: Yes (Other)
  Sender: FDA-Public Use
  Company Number: FR-CELGENEUS-FRA-20190200039

PATIENT
  Sex: Male
  Weight: 81 kg

DRUGS (1)
  1. AG-221 [Suspect]
     Active Substance: ENASIDENIB
     Indication: ACUTE MYELOID LEUKAEMIA REFRACTORY
     Dosage: 100 MILLIGRAM
     Route: 048
     Dates: start: 20181214

REACTIONS (3)
  - Febrile neutropenia [Recovering/Resolving]
  - Hyperbilirubinaemia [Unknown]
  - Fungal infection [Recovering/Resolving]
